FAERS Safety Report 6747929-7 (Version None)
Quarter: 2010Q2

REPORT INFORMATION
  Report Type: 
  Country: None (occurrence: None)
  Receive Date: 20100528
  Receipt Date: 20100525
  Transmission Date: 20101027
  Serious: Yes (Death, Hospitalization)
  Sender: FDA-Public Use
  Company Number: JP-ELI_LILLY_AND_COMPANY-JP200909002786

PATIENT
  Sex: Male
  Weight: 63 kg

DRUGS (13)
  1. ALIMTA [Suspect]
     Indication: LUNG ADENOCARCINOMA STAGE IV
     Dosage: 500 MG/M2, OTHER
     Route: 042
     Dates: start: 20090703, end: 20090703
  2. ALIMTA [Suspect]
     Dosage: 375 MG/M2, EVERY 21 DAYS
     Route: 042
     Dates: start: 20090727, end: 20090817
  3. CISPLATIN [Concomitant]
     Indication: LUNG ADENOCARCINOMA STAGE IV
     Dosage: 75 MG/M2, OTHER
     Route: 042
     Dates: start: 20090703, end: 20090703
  4. PANVITAN [Concomitant]
     Dosage: 1 G, DAILY (1/D)
     Route: 048
     Dates: start: 20090626, end: 20090917
  5. HYDROXOCOBALAMIN ACETATE [Concomitant]
     Dates: start: 20090626, end: 20090910
  6. OXYGEN [Concomitant]
     Dosage: FROM 1 L/MIN TO 2 LMIN, UNK
     Route: 055
     Dates: start: 20090625, end: 20090724
  7. ALLEGRA [Concomitant]
     Indication: URTICARIA CHRONIC
     Dosage: 60 MG, 2/D
     Route: 048
     Dates: start: 20090202, end: 20090929
  8. ASTOMIN [Concomitant]
     Indication: INTERSTITIAL LUNG DISEASE
     Dosage: 10 MG, 3/D
     Route: 048
     Dates: start: 20090611, end: 20090709
  9. MUCODYNE [Concomitant]
     Indication: INTERSTITIAL LUNG DISEASE
     Dosage: 500 MG, 3/D
     Route: 048
     Dates: start: 20090611, end: 20090709
  10. MUCOSTA [Concomitant]
     Indication: PROPHYLAXIS
     Dosage: 100 MG, 3/D
     Route: 048
     Dates: start: 20090611, end: 20090709
  11. OMEPRAL [Concomitant]
     Indication: GASTRIC ULCER
     Dosage: 20 MG, DAILY (1/D)
     Route: 048
     Dates: start: 20090702, end: 20090906
  12. MAALOX [Concomitant]
     Indication: GASTRIC ULCER
     Dosage: 1.2 G, 3/D
     Route: 048
     Dates: start: 20090722, end: 20090817
  13. HEPARIN SODIUM [Concomitant]
     Indication: DISSEMINATED INTRAVASCULAR COAGULATION
     Dosage: 10000 D/F, DAILY (1/D)
     Route: 042
     Dates: start: 20090706, end: 20090719

REACTIONS (5)
  - DIARRHOEA [None]
  - HEPATIC FUNCTION ABNORMAL [None]
  - INFECTION [None]
  - INTERSTITIAL LUNG DISEASE [None]
  - RENAL IMPAIRMENT [None]
